FAERS Safety Report 24718841 (Version 1)
Quarter: 2024Q4

REPORT INFORMATION
  Report Type: Spontaneous
  Country: CZ (occurrence: CZ)
  Receive Date: 20241210
  Receipt Date: 20241210
  Transmission Date: 20250114
  Serious: Yes (Other)
  Sender: RANBAXY
  Company Number: CZ-SUN PHARMACEUTICAL INDUSTRIES LTD-2024RR-483900

PATIENT
  Age: 60 Year
  Sex: Male

DRUGS (4)
  1. LEVOMEPROMAZINE [Suspect]
     Active Substance: LEVOMEPROMAZINE
     Indication: Dependence
     Dosage: 25 MG 0-0-2
     Route: 065
  2. TRAZODONE [Suspect]
     Active Substance: TRAZODONE HYDROCHLORIDE
     Indication: Dependence
     Dosage: 50 MG IN THE EVENING
     Route: 065
  3. DOSULEPIN HYDROCHLORIDE [Suspect]
     Active Substance: DOTHIEPIN HYDROCHLORIDE
     Indication: Anxiety
     Dosage: 25 MILLIGRAM, BID
     Route: 065
  4. CHLORPROTHIXENE [Suspect]
     Active Substance: CHLORPROTHIXENE
     Indication: Anxiety
     Dosage: 15 MILLIGRAM, TID, TBL
     Route: 065

REACTIONS (2)
  - Orthostatic hypotension [Unknown]
  - Dizziness [Unknown]
